FAERS Safety Report 25452301 (Version 3)
Quarter: 2025Q3

REPORT INFORMATION
  Report Type: Report from Study
  Country: US (occurrence: US)
  Receive Date: 20250618
  Receipt Date: 20250704
  Transmission Date: 20251020
  Serious: Yes (Hospitalization)
  Sender: MALLINCKRODT
  Company Number: US-MALLINCKRODT-MNK202503651

PATIENT
  Age: 7 Month
  Sex: Female
  Weight: 9 kg

DRUGS (2)
  1. CORTICOTROPIN [Suspect]
     Active Substance: CORTICOTROPIN
     Indication: Infantile spasms
     Route: 030
     Dates: start: 20250531, end: 2025
  2. CORTICOTROPIN [Suspect]
     Active Substance: CORTICOTROPIN
     Dosage: 12 UNITS
     Route: 030
     Dates: start: 2025

REACTIONS (2)
  - Infantile spasms [Not Recovered/Not Resolved]
  - Absence of immediate treatment response [Not Recovered/Not Resolved]

NARRATIVE: CASE EVENT DATE: 20250101
